FAERS Safety Report 4319089-3 (Version None)
Quarter: 2004Q1

REPORT INFORMATION
  Report Type: 
  Country: None (occurrence: None)
  Receive Date: 20040318
  Receipt Date: 20040318
  Transmission Date: 20041129
  Serious: Yes (Life-Threatening, Other)
  Sender: FDA-Public Use
  Company Number: None

PATIENT
  Sex: Female
  Weight: 71.2147 kg

DRUGS (1)
  1. VIOXX [Suspect]
     Indication: MYALGIA
     Dosage: .25 MG /DAY
     Dates: start: 20040203, end: 20040204

REACTIONS (12)
  - ABASIA [None]
  - ASTHENIA [None]
  - CARDIAC MURMUR [None]
  - CARDIOMEGALY [None]
  - FEELING ABNORMAL [None]
  - FLUID RETENTION [None]
  - HYPERTENSION [None]
  - LUNG DISORDER [None]
  - OEDEMA PERIPHERAL [None]
  - PAIN [None]
  - SCAR [None]
  - THYROID DISORDER [None]
